FAERS Safety Report 19841385 (Version 1)
Quarter: 2021Q3

REPORT INFORMATION
  Report Type: Spontaneous
  Country: IT (occurrence: IT)
  Receive Date: 20210916
  Receipt Date: 20210916
  Transmission Date: 20211014
  Serious: Yes (Other)
  Sender: FDA-Public Use
  Company Number: IT-ASTRAZENECA-2021A722943

PATIENT
  Age: 79 Year
  Sex: Male

DRUGS (5)
  1. TRIATEC [Concomitant]
  2. LASIX [Concomitant]
     Active Substance: FUROSEMIDE
  3. SEROQUEL [Suspect]
     Active Substance: QUETIAPINE FUMARATE
     Indication: BIPOLAR DISORDER
     Route: 048
  4. REMERON [Concomitant]
     Active Substance: MIRTAZAPINE
  5. TORVAST [Concomitant]
     Active Substance: ATORVASTATIN

REACTIONS (4)
  - Bradyphrenia [Recovering/Resolving]
  - Syncope [Recovering/Resolving]
  - Delirium [Recovering/Resolving]
  - Dysarthria [Recovering/Resolving]

NARRATIVE: CASE EVENT DATE: 20210818
